FAERS Safety Report 10557897 (Version 2)
Quarter: 2014Q4

REPORT INFORMATION
  Report Type: Spontaneous
  Country: US (occurrence: US)
  Receive Date: 20141031
  Receipt Date: 20141118
  Transmission Date: 20150529
  Serious: Yes (Hospitalization)
  Sender: FDA-Public Use
  Company Number: US-TAKEDA-2014TUS010485

PATIENT
  Age: 61 Year
  Sex: Female
  Weight: 90.7 kg

DRUGS (3)
  1. PREDNISONE. [Suspect]
     Active Substance: PREDNISONE
     Dosage: 20 MG, QD
     Route: 048
     Dates: start: 20140501
  2. ENTYVIO [Suspect]
     Active Substance: VEDOLIZUMAB
     Indication: COLITIS ULCERATIVE
     Dosage: 300 MG, FIRST DOSE
     Route: 042
     Dates: start: 20140922, end: 20140922
  3. ENTYVIO [Suspect]
     Active Substance: VEDOLIZUMAB
     Dosage: SECOND INFUSION
     Route: 042
     Dates: start: 20141103

REACTIONS (6)
  - Oedema peripheral [Recovering/Resolving]
  - Diabetes mellitus [Recovering/Resolving]
  - Vaginal infection [Unknown]
  - Stomatitis [Unknown]
  - Arthritis [Unknown]
  - Anaemia [Unknown]

NARRATIVE: CASE EVENT DATE: 20141009
